FAERS Safety Report 4701026-0 (Version None)
Quarter: 2005Q2

REPORT INFORMATION
  Report Type: 
  Country: None (occurrence: None)
  Receive Date: 20050624
  Receipt Date: 20050615
  Transmission Date: 20051028
  Serious: Yes (Other)
  Sender: FDA-Public Use
  Company Number: 2005088731

PATIENT
  Age: 23 Year
  Sex: Female
  Weight: 58.9676 kg

DRUGS (1)
  1. BEXTRA [Suspect]
     Indication: BURSITIS
     Dosage: 10 MG (10 MG, 1 IN 1 D), ORAL
     Route: 048
     Dates: start: 20030210, end: 20030225

REACTIONS (3)
  - CEREBROVASCULAR ACCIDENT [None]
  - NERVE INJURY [None]
  - WHEEZING [None]
